FAERS Safety Report 6474664-5 (Version None)
Quarter: 2009Q4

REPORT INFORMATION
  Report Type: 
  Country: None (occurrence: None)
  Receive Date: 20091201
  Receipt Date: 20091116
  Transmission Date: 20100525
  Serious: Yes (Disabling)
  Sender: FDA-Public Use
  Company Number: 2009-1792

PATIENT
  Age: 47 Year
  Sex: Female

DRUGS (3)
  1. DYSPORT [Suspect]
     Indication: PARESIS
     Dosage: (1000 UNITS, CYCLICAL), INTRAMUSCULAR
     Route: 030
     Dates: start: 20090327, end: 20090327
  2. DYSPORT [Suspect]
     Indication: PARESIS
     Dosage: (1000 UNITS, CYCLICAL), INTRAMUSCULAR
     Route: 030
     Dates: start: 20090629, end: 20090629
  3. TRAMADOL HCL [Concomitant]

REACTIONS (6)
  - ASTHENIA [None]
  - CHOKING [None]
  - DISORIENTATION [None]
  - DIZZINESS [None]
  - DYSPHAGIA [None]
  - DYSPNOEA EXERTIONAL [None]
